FAERS Safety Report 25032869 (Version 2)
Quarter: 2025Q1

REPORT INFORMATION
  Report Type: Report from Study
  Country: JP (occurrence: JP)
  Receive Date: 20250303
  Receipt Date: 20250317
  Transmission Date: 20250408
  Serious: Yes (Other)
  Sender: RADIUS PHARM
  Company Number: JP-RADIUS HEALTH INC.-2024JP002257

PATIENT
  Age: 64 Year
  Sex: Male

DRUGS (4)
  1. ABALOPARATIDE [Suspect]
     Active Substance: ABALOPARATIDE
     Indication: Osteoporosis
     Route: 058
     Dates: start: 20240202, end: 20240818
  2. ABALOPARATIDE [Suspect]
     Active Substance: ABALOPARATIDE
     Route: 058
     Dates: start: 20241008
  3. CALONAL [Concomitant]
     Active Substance: ACETAMINOPHEN
     Indication: Clavicle fracture
     Route: 048
  4. CALONAL [Concomitant]
     Active Substance: ACETAMINOPHEN
     Indication: Pain

REACTIONS (23)
  - Injection site pain [Unknown]
  - Alcoholic hangover [Unknown]
  - Nausea [Unknown]
  - Injection site haemorrhage [Unknown]
  - Feeling abnormal [Unknown]
  - Spinal X-ray abnormal [Unknown]
  - Insomnia [Unknown]
  - Nasopharyngitis [Unknown]
  - Injection site deformation [Unknown]
  - Injection site discolouration [Unknown]
  - Chest discomfort [Unknown]
  - Decreased appetite [Unknown]
  - Overdose [Unknown]
  - Injection site discomfort [Unknown]
  - Injection site pain [Unknown]
  - Feeling abnormal [Unknown]
  - Pyrexia [Recovered/Resolved]
  - Dizziness [Recovered/Resolved]
  - Malaise [Unknown]
  - Feeling abnormal [Unknown]
  - Feeling abnormal [Unknown]
  - Cardiac dysfunction [Unknown]
  - Diabetes mellitus [Unknown]

NARRATIVE: CASE EVENT DATE: 20240101
